FAERS Safety Report 18677115 (Version 1)
Quarter: 2020Q4

REPORT INFORMATION
  Report Type: Spontaneous
  Country: GB (occurrence: GB)
  Receive Date: 20201229
  Receipt Date: 20201229
  Transmission Date: 20210114
  Serious: Yes (Other)
  Sender: FDA-Public Use
  Company Number: GB-JNJFOC-20201250696

PATIENT
  Age: 47 Year
  Sex: Male

DRUGS (4)
  1. ARIPIPRAZOLE. [Concomitant]
     Active Substance: ARIPIPRAZOLE
  2. TREVICTA [Suspect]
     Active Substance: PALIPERIDONE PALMITATE
     Indication: SCHIZOPHRENIA
     Route: 030
     Dates: start: 201803, end: 201903
  3. TREVICTA [Suspect]
     Active Substance: PALIPERIDONE PALMITATE
  4. TREVICTA [Suspect]
     Active Substance: PALIPERIDONE PALMITATE

REACTIONS (1)
  - Ejaculation failure [Not Recovered/Not Resolved]

NARRATIVE: CASE EVENT DATE: 201810
